FAERS Safety Report 9525089 (Version 2)
Quarter: 2013Q3

REPORT INFORMATION
  Report Type: Spontaneous
  Country: US (occurrence: None)
  Receive Date: 20130912
  Receipt Date: 20130926
  Transmission Date: 20140515
  Serious: Yes (Hospitalization, Other)
  Sender: FDA-Public Use
  Company Number: ADR-2013-01593

PATIENT
  Age: 33 Year
  Sex: Male

DRUGS (5)
  1. BACLOFEN INTRATHECAL [Suspect]
     Indication: SPINAL PAIN
  2. FENTANYL [Suspect]
     Dosage: 351.5MCG/DAY; SEE B5
  3. CLONIDINE [Suspect]
  4. BUPIVACAINE [Suspect]
  5. MORPHINE [Suspect]

REACTIONS (11)
  - Feeling hot [None]
  - Malaise [None]
  - Vomiting [None]
  - Withdrawal syndrome [None]
  - Drug ineffective [None]
  - Salmonellosis [None]
  - Device occlusion [None]
  - Headache [None]
  - Vision blurred [None]
  - Asthenia [None]
  - Scar [None]
